FAERS Safety Report 9262533 (Version 1)
Quarter: 2013Q2

REPORT INFORMATION
  Report Type: Spontaneous
  Country: US (occurrence: US)
  Receive Date: 20130430
  Receipt Date: 20130430
  Transmission Date: 20140414
  Serious: Yes (Hospitalization)
  Sender: FDA-Public Use
  Company Number: US-BAYER-2013-051954

PATIENT
  Age: 44 Year
  Sex: Female
  Weight: 104.31 kg

DRUGS (3)
  1. YAZ [Suspect]
     Indication: CONTRACEPTION
  2. NEXIUM [Concomitant]
     Dosage: 20 MG, DAILY
  3. CLINDAMYCIN HYDROCHLORIDE [Concomitant]
     Dosage: 150 MG, UNK

REACTIONS (2)
  - Pulmonary embolism [None]
  - Deep vein thrombosis [None]
